FAERS Safety Report 23246035 (Version 1)
Quarter: 2023Q4

REPORT INFORMATION
  Report Type: Spontaneous
  Country: US (occurrence: None)
  Receive Date: 20231129
  Receipt Date: 20231129
  Transmission Date: 20240109
  Serious: Yes (Other)
  Sender: FDA-Public Use
  Company Number: None

PATIENT
  Age: 50 Year
  Sex: Male
  Weight: 72 kg

DRUGS (2)
  1. REPATHA [Suspect]
     Active Substance: EVOLOCUMAB
     Indication: Type IIa hyperlipidaemia
     Dates: start: 20220801, end: 20231001
  2. fish oil pills [Concomitant]

REACTIONS (5)
  - Eructation [None]
  - Gastrooesophageal reflux disease [None]
  - Gastrointestinal ulcer [None]
  - Gastrointestinal inflammation [None]
  - Gastroenteritis [None]

NARRATIVE: CASE EVENT DATE: 20230801
